FAERS Safety Report 4493269-9 (Version None)
Quarter: 2004Q4

REPORT INFORMATION
  Report Type: 
  Country: None (occurrence: None)
  Receive Date: 20041104
  Receipt Date: 20041028
  Transmission Date: 20050328
  Serious: Yes (Death, Disabling)
  Sender: FDA-Public Use
  Company Number: 91104724

PATIENT
  Age: 10 Month
  Sex: Female

DRUGS (1)
  1. MONISTAT 7 [Suspect]
     Route: 067

REACTIONS (2)
  - CONGENITAL ANOMALY [None]
  - DRUG EXPOSURE DURING PREGNANCY [None]
